FAERS Safety Report 19885793 (Version 2)
Quarter: 2022Q1

REPORT INFORMATION
  Report Type: Spontaneous
  Country: FR (occurrence: FR)
  Receive Date: 20210927
  Receipt Date: 20220209
  Transmission Date: 20220423
  Serious: Yes (Hospitalization)
  Sender: FDA-Public Use
  Company Number: FR-PERRIGO-21FR028309

PATIENT
  Age: 90 Year
  Sex: Female

DRUGS (1)
  1. ACETAMINOPHEN [Suspect]
     Active Substance: ACETAMINOPHEN
     Indication: Product used for unknown indication
     Dosage: UNK
     Route: 048

REACTIONS (2)
  - Drug-induced liver injury [Recovered/Resolved]
  - Toxicity to various agents [Recovered/Resolved]
